FAERS Safety Report 16041119 (Version 1)
Quarter: 2019Q1

REPORT INFORMATION
  Report Type: Spontaneous
  Country: US (occurrence: US)
  Receive Date: 20190306
  Receipt Date: 20190306
  Transmission Date: 20190418
  Serious: No
  Sender: FDA-Public Use
  Company Number: US-AKORN PHARMACEUTICALS-2019AKN00037

PATIENT
  Age: 20 Year
  Sex: Female
  Weight: 52.15 kg

DRUGS (4)
  1. TAYTULLA [Concomitant]
     Active Substance: ETHINYL ESTRADIOL\NORETHINDRONE ACETATE
  2. MYORISAN [Suspect]
     Active Substance: ISOTRETINOIN
     Indication: ACNE
     Dosage: 30 MG, 1X/DAY, IN THE MORNING
     Route: 048
     Dates: start: 20181113, end: 201811
  3. MYORISAN [Suspect]
     Active Substance: ISOTRETINOIN
     Indication: ACNE
     Dosage: 20 MG, 1X/DAY, IN THE EVENING
     Route: 048
     Dates: start: 20181113
  4. CLARAVIS [Suspect]
     Active Substance: ISOTRETINOIN
     Indication: ACNE
     Dosage: UNK
     Dates: start: 20181114

REACTIONS (3)
  - Unevaluable event [Unknown]
  - Rash [Recovered/Resolved]
  - Product dispensing issue [Unknown]

NARRATIVE: CASE EVENT DATE: 201811
